FAERS Safety Report 5114998-X (Version None)
Quarter: 2006Q3

REPORT INFORMATION
  Report Type: 
  Country: None (occurrence: None)
  Receive Date: 20060925
  Receipt Date: 20060925
  Transmission Date: 20061208
  Serious: No
  Sender: FDA-Public Use
  Company Number: None

PATIENT
  Sex: Male
  Weight: 79 kg

DRUGS (5)
  1. I-131 TOSITUMOMAB [Suspect]
     Indication: DIFFUSE LARGE B-CELL LYMPHOMA
     Dosage: SEE IMAGE
     Route: 042
     Dates: start: 20060915
  2. AMIODARONE HCL [Concomitant]
  3. PRILOSEC [Concomitant]
  4. SSKI [Concomitant]
  5. M.V.I. [Concomitant]

REACTIONS (2)
  - DYSPHAGIA [None]
  - ODYNOPHAGIA [None]
